FAERS Safety Report 4785106-X (Version None)
Quarter: 2005Q3

REPORT INFORMATION
  Report Type: 
  Country: None (occurrence: None)
  Receive Date: 20050928
  Receipt Date: 20050912
  Transmission Date: 20060218
  Serious: Yes (Death)
  Sender: FDA-Public Use
  Company Number: EWC050945794

PATIENT
  Age: 31 Year
  Sex: Female
  Weight: 65 kg

DRUGS (3)
  1. ZYPREXA [Suspect]
     Indication: PSYCHOTIC DISORDER
     Dosage: 5 MG/1 IN THE EVENING
     Dates: start: 20050701, end: 20050820
  2. FLUOXETINE [Suspect]
     Indication: DEPRESSIVE SYMPTOM
     Dosage: 20 MG/1 AT NOON
     Dates: start: 20050701, end: 20050820
  3. FLUOXETINE [Suspect]
     Indication: PSYCHOTIC DISORDER
     Dosage: 20 MG/1 AT NOON
     Dates: start: 20050701, end: 20050820

REACTIONS (4)
  - COMPLETED SUICIDE [None]
  - DELUSION [None]
  - SUICIDAL IDEATION [None]
  - VIRAL INFECTION [None]
